FAERS Safety Report 22749257 (Version 2)
Quarter: 2023Q4

REPORT INFORMATION
  Report Type: Spontaneous
  Country: US (occurrence: US)
  Receive Date: 20230725
  Receipt Date: 20231130
  Transmission Date: 20240109
  Serious: No
  Sender: FDA-Public Use
  Company Number: US-PFIZER INC-202300253896

PATIENT
  Age: 63 Year
  Sex: Female

DRUGS (10)
  1. XELJANZ [Suspect]
     Active Substance: TOFACITINIB CITRATE
     Dosage: 10 MG, 2X/DAY (FOR 8 WEEKS UP TO 16 WEEKS IF NEEDED)
     Route: 048
     Dates: start: 20230710
  2. TUMS [Concomitant]
     Active Substance: CALCIUM CARBONATE
     Dosage: 200(500)MG
  3. ZINC [Concomitant]
     Active Substance: PYRITHIONE ZINC\ZINC\ZINC CHLORIDE
  4. CALCIUM-VIT D3 [Concomitant]
     Dosage: 600-600 MG 10 TABLET
  5. VITAMINS [Concomitant]
     Active Substance: VITAMINS
     Dosage: 18-400-500 TABLET
  6. BIOTIN [Concomitant]
     Active Substance: BIOTIN
     Dosage: UNK
  7. VITAMIN B12 [Concomitant]
     Active Substance: CYANOCOBALAMIN
  8. ALLEGRA-D 24 HOUR [Concomitant]
     Active Substance: FEXOFENADINE HYDROCHLORIDE\PSEUDOEPHEDRINE HYDROCHLORIDE
  9. PROBIOTIC 3B CELL [Concomitant]
  10. FLUAD QUAD 2022-2023 [Concomitant]
     Dosage: UNK

REACTIONS (2)
  - Sinus disorder [Unknown]
  - Headache [Not Recovered/Not Resolved]
